FAERS Safety Report 16972181 (Version 2)
Quarter: 2019Q4

REPORT INFORMATION
  Report Type: Report from Study
  Country: US (occurrence: US)
  Receive Date: 20191029
  Receipt Date: 20191206
  Transmission Date: 20200122
  Serious: Yes (Death, Hospitalization)
  Sender: FDA-Public Use
  Company Number: US-ACTELION-A-NJ2019-197415

PATIENT
  Age: 12 Month
  Sex: Male

DRUGS (1)
  1. TRACLEER [Suspect]
     Active Substance: BOSENTAN
     Indication: PULMONARY ARTERIAL HYPERTENSION
     Dosage: 62.5 MG, BID
     Route: 048
     Dates: start: 20190605

REACTIONS (5)
  - Oxygen saturation decreased [Unknown]
  - Respiratory failure [Unknown]
  - Death [Fatal]
  - Blood potassium decreased [Recovering/Resolving]
  - Carbon dioxide increased [Unknown]

NARRATIVE: CASE EVENT DATE: 2019
